FAERS Safety Report 13093633 (Version 1)
Quarter: 2017Q1

REPORT INFORMATION
  Report Type: Spontaneous
  Country: US (occurrence: US)
  Receive Date: 20170106
  Receipt Date: 20170106
  Transmission Date: 20170428
  Serious: No
  Sender: FDA-Public Use
  Company Number: US-TARO-2016TAR00622

PATIENT
  Age: 88 Year
  Sex: Female
  Weight: 61.22 kg

DRUGS (8)
  1. HYDROMET [Concomitant]
     Active Substance: HOMATROPINE METHYLBROMIDE\HYDROCODONE BITARTRATE
     Dosage: UNK, AS NEEDED
  2. AMLACTIN [Concomitant]
     Active Substance: AMMONIUM LACTATE
  3. OXYBUTYNIN [Concomitant]
     Active Substance: OXYBUTYNIN
  4. ^SEVERAL ANTI-ITCH CREAMS^ [Concomitant]
  5. PRESERVISION [Concomitant]
     Active Substance: MINERALS\VITAMINS
  6. ^VARIOUS VITAMINS (B COMPLEX, VITAMIN C, VITAMIN D)^ [Concomitant]
  7. CLONAZEPAM. [Concomitant]
     Active Substance: CLONAZEPAM
     Dosage: UNK, AS NEEDED
  8. ECONAZOLE NITRATE CREAM 1% [Suspect]
     Active Substance: ECONAZOLE NITRATE
     Indication: FUNGAL SKIN INFECTION
     Dosage: UNK, ONCE
     Route: 061
     Dates: start: 20160622, end: 20160622

REACTIONS (1)
  - Application site pain [Recovered/Resolved]

NARRATIVE: CASE EVENT DATE: 20160622
